FAERS Safety Report 8476755 (Version 4)
Quarter: 2012Q4

REPORT INFORMATION
  Report Type: 
  Country: IT (occurrence: IT)
  Receive Date: 20120326
  Receipt Date: 20121129
  Transmission Date: 20130627
  Serious: Yes (Life-Threatening)
  Sender: FDA-Public Use
  Company Number: IT-UCBSA-053577

PATIENT
  Age: 76 Year
  Sex: Female

DRUGS (6)
  1. DEPONIT [Suspect]
     Indication: SYSTEMIC SCLEROSIS
     Dosage: 15 TRANSDERMAL PATCHES
     Route: 062
     Dates: start: 20120226, end: 20120226
  2. DEPONIT [Suspect]
     Indication: RAYNAUD^S PHENOMENON
     Dosage: 15 TRANSDERMAL PATCHES
     Route: 062
     Dates: start: 20120226, end: 20120226
  3. OLPRESS [Concomitant]
     Dosage: 20 MG, 28 FILM COATED TABLETS
     Route: 048
  4. DIBASE [Concomitant]
     Dosage: 10000 UI/ML.,10 ML BOTTLE WITH DROPPER, TOTAL DAILY DOSE:3 DROPS
     Route: 048
  5. VISTAGAN [Concomitant]
     Dosage: 0.5% EYE DROPS SOLUTION,5 ML BOTTLE
     Route: 047
  6. XALATAN [Concomitant]
     Dosage: 0.005% EYE DROPS SOLUTION,2.5 ML BOTTLE

REACTIONS (6)
  - Chest pain [Recovered/Resolved with Sequelae]
  - Confusional state [Recovered/Resolved with Sequelae]
  - Balance disorder [Recovered/Resolved with Sequelae]
  - Dyspnoea [Recovered/Resolved with Sequelae]
  - Headache [Recovered/Resolved with Sequelae]
  - Incorrect dose administered [Recovered/Resolved]
